FAERS Safety Report 5282232-6 (Version None)
Quarter: 2007Q1

REPORT INFORMATION
  Report Type: 
  Country: None (occurrence: None)
  Receive Date: 20070330
  Receipt Date: 20070320
  Transmission Date: 20070707
  Serious: Yes (Other)
  Sender: FDA-Public Use
  Company Number: US-PFIZER INC-2007022421

PATIENT
  Age: 70 Year
  Sex: Female
  Weight: 47.6 kg

DRUGS (2)
  1. LIPITOR [Suspect]
     Indication: BLOOD CHOLESTEROL INCREASED
  2. ACYCLOVIR [Interacting]
     Indication: HERPES ZOSTER

REACTIONS (2)
  - DRUG INTERACTION [None]
  - HERPES ZOSTER [None]
